FAERS Safety Report 26184498 (Version 1)
Quarter: 2025Q4

REPORT INFORMATION
  Report Type: Spontaneous
  Country: JP (occurrence: JP)
  Receive Date: 20251222
  Receipt Date: 20251222
  Transmission Date: 20260118
  Serious: Yes (Death, Life-Threatening, Hospitalization)
  Sender: ROCHE
  Company Number: JP-CHUGAI-2025029687

PATIENT
  Age: 72 Year
  Sex: Male
  Weight: 30.2 kg

DRUGS (4)
  1. HEMLIBRA [Suspect]
     Active Substance: EMICIZUMAB-KXWH
     Indication: Acquired haemophilia
     Dosage: UNK
     Route: 058
  2. AMINO ACIDS\CARBOHYDRATES\MINERALS\SOYBEAN OIL\VITAMINS [Suspect]
     Active Substance: AMINO ACIDS\CARBOHYDRATES\MINERALS\SOYBEAN OIL\VITAMINS
     Indication: Product used for unknown indication
     Dosage: UNK
     Dates: end: 20251114
  3. PREDONINE [Concomitant]
     Active Substance: PREDNISOLONE
     Dosage: UNK
     Route: 048
     Dates: start: 20251002, end: 20251112
  4. VONOPRAZAN FUMARATE [Concomitant]
     Active Substance: VONOPRAZAN FUMARATE
     Dosage: UNK
     Route: 048
     Dates: start: 20251002, end: 20251024

REACTIONS (3)
  - Pneumonia [Fatal]
  - Peripheral arterial occlusive disease [Recovering/Resolving]
  - Femoral neck fracture [Recovering/Resolving]

NARRATIVE: CASE EVENT DATE: 20250726
